FAERS Safety Report 4474440-9 (Version None)
Quarter: 2004Q4

REPORT INFORMATION
  Report Type: 
  Country: None (occurrence: None)
  Receive Date: 20041012
  Receipt Date: 20040927
  Transmission Date: 20050328
  Serious: Yes (Hospitalization)
  Sender: FDA-Public Use
  Company Number: 2004-BP-08775BR

PATIENT
  Age: 64 Year
  Sex: Male

DRUGS (2)
  1. SPIRIVA [Suspect]
     Indication: HYPERTENSION
     Dosage: 18 MCG (18MCG, 1 KAI OAD)
     Route: 055
     Dates: start: 20040101, end: 20040801
  2. AEROTIDE (CLENIL COMPOSITUM SPRAY) [Concomitant]

REACTIONS (3)
  - BUNDLE BRANCH BLOCK RIGHT [None]
  - SELF-MEDICATION [None]
  - SUPRAVENTRICULAR TACHYCARDIA [None]
